FAERS Safety Report 9868901 (Version 2)
Quarter: 2014Q1

REPORT INFORMATION
  Report Type: Spontaneous
  Country: US (occurrence: US)
  Receive Date: 20140204
  Receipt Date: 20140204
  Transmission Date: 20141002
  Serious: Yes (Hospitalization, Disabling)
  Sender: FDA-Public Use
  Company Number: US-GE HEALTHCARE MEDICAL DIAGNOSTICS-OSCN-PR-0903S-0144

PATIENT
  Sex: Female

DRUGS (55)
  1. OMNISCAN [Suspect]
     Indication: HEADACHE
     Dates: start: 20000612, end: 20000612
  2. OMNISCAN [Suspect]
     Indication: GALACTORRHOEA
     Dates: start: 20001020, end: 20001020
  3. OMNISCAN [Suspect]
     Indication: BLOOD PROLACTIN INCREASED
     Dates: start: 20010125, end: 20010125
  4. OMNISCAN [Suspect]
     Indication: CONVULSION
     Dates: start: 20040312, end: 20040312
  5. OMNISCAN [Suspect]
     Indication: SYSTEMIC LUPUS ERYTHEMATOSUS
     Dates: start: 20060406, end: 20060406
  6. OMNISCAN [Suspect]
     Indication: LUPUS ENCEPHALITIS
     Dates: start: 20060720, end: 20060720
  7. OMNISCAN [Suspect]
     Dates: start: 20000612, end: 20000612
  8. OMNISCAN [Suspect]
     Dates: start: 20001020, end: 20001020
  9. GADOLINIUM (UNSPECIFIED) [Suspect]
     Indication: PRODUCT USED FOR UNKNOWN INDICATION
     Dates: start: 19970106, end: 19970106
  10. GADOLINIUM (UNSPECIFIED) [Suspect]
     Dates: start: 19970718, end: 19970718
  11. GADOLINIUM (UNSPECIFIED) [Suspect]
     Dates: start: 19980217, end: 19980217
  12. GADOLINIUM (UNSPECIFIED) [Suspect]
     Dates: start: 20001226, end: 20001226
  13. OPTIMARK [Suspect]
     Indication: HEADACHE
     Dates: start: 20030121, end: 20030121
  14. OPTIMARK [Suspect]
  15. PREDNISONE [Concomitant]
     Indication: PRODUCT USED FOR UNKNOWN INDICATION
     Dates: start: 200306
  16. CYTOXAN [Concomitant]
     Indication: LUPUS NEPHRITIS
  17. EPOGEN [Concomitant]
     Indication: PRODUCT USED FOR UNKNOWN INDICATION
  18. PLAQUENIL [Concomitant]
     Indication: PRODUCT USED FOR UNKNOWN INDICATION
  19. CELLCEPT [Concomitant]
     Indication: PRODUCT USED FOR UNKNOWN INDICATION
  20. FERROUS SULFATE [Concomitant]
     Indication: PRODUCT USED FOR UNKNOWN INDICATION
  21. AZATHIOPRINE [Concomitant]
     Indication: PRODUCT USED FOR UNKNOWN INDICATION
  22. PENTAMIDINE [Concomitant]
     Indication: PRODUCT USED FOR UNKNOWN INDICATION
  23. GAMMAGLOBULIN [Concomitant]
     Indication: PRODUCT USED FOR UNKNOWN INDICATION
  24. CALCIUM CARBONATE [Concomitant]
     Indication: PRODUCT USED FOR UNKNOWN INDICATION
  25. ROCAL TROL [Concomitant]
     Indication: PRODUCT USED FOR UNKNOWN INDICATION
  26. MEGACE [Concomitant]
     Indication: PRODUCT USED FOR UNKNOWN INDICATION
  27. FOSRENOL [Concomitant]
     Indication: PRODUCT USED FOR UNKNOWN INDICATION
  28. PLAVIX [Concomitant]
     Indication: PRODUCT USED FOR UNKNOWN INDICATION
  29. VASOTEC [Concomitant]
     Indication: PRODUCT USED FOR UNKNOWN INDICATION
  30. IMURAN [Concomitant]
     Indication: PRODUCT USED FOR UNKNOWN INDICATION
  31. LASIX [Concomitant]
     Indication: PRODUCT USED FOR UNKNOWN INDICATION
  32. AMITRIPTYLINE [Concomitant]
     Indication: PRODUCT USED FOR UNKNOWN INDICATION
  33. RENAGEL [Concomitant]
     Indication: PRODUCT USED FOR UNKNOWN INDICATION
  34. ACETYLSALICYLIC ACID [Concomitant]
     Indication: PRODUCT USED FOR UNKNOWN INDICATION
  35. LISINOPRIL [Concomitant]
     Indication: PRODUCT USED FOR UNKNOWN INDICATION
  36. INTAL [Concomitant]
     Indication: PRODUCT USED FOR UNKNOWN INDICATION
  37. ALBUTEROL [Concomitant]
     Indication: PRODUCT USED FOR UNKNOWN INDICATION
  38. ZEMPLAR [Concomitant]
     Indication: PRODUCT USED FOR UNKNOWN INDICATION
  39. SODIUM BICARBONATE [Concomitant]
     Indication: PRODUCT USED FOR UNKNOWN INDICATION
  40. ALUMINUM HYDROXIDE [Concomitant]
     Indication: PRODUCT USED FOR UNKNOWN INDICATION
  41. KAYEXALATE [Concomitant]
     Indication: PRODUCT USED FOR UNKNOWN INDICATION
  42. AMIODARONE [Concomitant]
     Indication: PRODUCT USED FOR UNKNOWN INDICATION
  43. METOPROLOL TARTRATE [Concomitant]
     Indication: PRODUCT USED FOR UNKNOWN INDICATION
  44. NEURONTIN [Concomitant]
     Indication: PRODUCT USED FOR UNKNOWN INDICATION
  45. FLUCONAZOLE [Concomitant]
     Indication: PRODUCT USED FOR UNKNOWN INDICATION
  46. HYDRALAZINE [Concomitant]
     Indication: PRODUCT USED FOR UNKNOWN INDICATION
  47. NITROGLYCERIN [Concomitant]
     Indication: PRODUCT USED FOR UNKNOWN INDICATION
  48. TACROLIMUS [Concomitant]
     Indication: PRODUCT USED FOR UNKNOWN INDICATION
  49. HYDROCORTISONE [Concomitant]
     Indication: PRODUCT USED FOR UNKNOWN INDICATION
  50. CLONIDINE [Concomitant]
     Indication: PRODUCT USED FOR UNKNOWN INDICATION
  51. NORVASC [Concomitant]
     Indication: PRODUCT USED FOR UNKNOWN INDICATION
  52. LOPID [Concomitant]
     Indication: PRODUCT USED FOR UNKNOWN INDICATION
  53. HYDROCHLOROTHIAZIDE [Concomitant]
     Indication: PRODUCT USED FOR UNKNOWN INDICATION
  54. ZOCOR [Concomitant]
     Indication: PRODUCT USED FOR UNKNOWN INDICATION
  55. DUONEB [Concomitant]
     Indication: PRODUCT USED FOR UNKNOWN INDICATION

REACTIONS (1)
  - Nephrogenic systemic fibrosis [Not Recovered/Not Resolved]
